FAERS Safety Report 6542195-X (Version None)
Quarter: 2010Q1

REPORT INFORMATION
  Report Type: 
  Country: None (occurrence: None)
  Receive Date: 20100119
  Receipt Date: 20100115
  Transmission Date: 20100710
  Serious: Yes (Other)
  Sender: FDA-Public Use
  Company Number: A0839744A

PATIENT
  Sex: Female

DRUGS (18)
  1. LOVAZA [Suspect]
     Indication: DRUG USE FOR UNKNOWN INDICATION
     Dosage: 4CAP AT NIGHT
     Route: 048
     Dates: start: 20090101
  2. DEPAKOTE [Concomitant]
  3. DEXEDRINE [Concomitant]
  4. PROZAC [Concomitant]
  5. KLONOPIN [Concomitant]
  6. VITAMIN B-12 [Concomitant]
  7. VITAMIN B COMPLEX CAP [Concomitant]
  8. VITAMIN C [Concomitant]
  9. OXYCODONE HCL AND ACETAMINOPHEN [Concomitant]
  10. TRAZODONE [Concomitant]
  11. FUROSEMIDE [Concomitant]
  12. KLOR-CON [Concomitant]
  13. PROVIGIL [Concomitant]
  14. UNKNOWN [Concomitant]
  15. LIDODERM [Concomitant]
  16. MULTI-VITAMINS [Concomitant]
  17. CALCIUM [Concomitant]
  18. VITAMIN D [Concomitant]

REACTIONS (8)
  - CHOKING [None]
  - COMMUNICATION DISORDER [None]
  - CONTUSION [None]
  - DYSPNOEA [None]
  - EXCORIATION [None]
  - FALL [None]
  - FOREIGN BODY [None]
  - JOINT SWELLING [None]
